FAERS Safety Report 6681988-5 (Version None)
Quarter: 2010Q2

REPORT INFORMATION
  Report Type: 
  Country: None (occurrence: None)
  Receive Date: 20100414
  Receipt Date: 20100414
  Transmission Date: 20101027
  Serious: No
  Sender: FDA-Public Use
  Company Number: None

PATIENT
  Sex: Male
  Weight: 88.905 kg

DRUGS (1)
  1. RISPERDAL [Suspect]
     Dosage: 2 MG TAB OFTEN AND ON
     Dates: start: 19990101

REACTIONS (1)
  - DIABETES MELLITUS [None]
